FAERS Safety Report 10483988 (Version 2)
Quarter: 2014Q4

REPORT INFORMATION
  Report Type: Spontaneous
  Country: BR (occurrence: BR)
  Receive Date: 20140930
  Receipt Date: 20141008
  Transmission Date: 20150528
  Serious: Yes (Other)
  Sender: FDA-Public Use
  Company Number: BR-PFIZER INC-2014264971

PATIENT
  Age: 80 Year
  Sex: Male
  Weight: 80 kg

DRUGS (7)
  1. COMBIGAN [Concomitant]
     Active Substance: BRIMONIDINE TARTRATE\TIMOLOL MALEATE
     Dosage: EVERY 12 HOURS
  2. TIMOLOL MALEATE. [Concomitant]
     Active Substance: TIMOLOL MALEATE
     Dosage: 0.5 ML, 1 DROP IN THE RIGHT EYE
     Dates: start: 2004
  3. SLOW-K [Concomitant]
     Active Substance: POTASSIUM CHLORIDE
     Dosage: 600 MG, 2X/DAY ( TABLET OF 600 MG, AT LUNCH AND AT DINNER)
  4. XALATAN [Suspect]
     Active Substance: LATANOPROST
     Indication: INTRAOCULAR PRESSURE INCREASED
     Dosage: UNK
     Dates: start: 201409
  5. XALATAN [Suspect]
     Active Substance: LATANOPROST
     Indication: GLAUCOMA
     Dosage: 1.5 UG, 1 DROP ONLY IN THE RIGHT EYE, DAILY
     Route: 047
     Dates: start: 2004
  6. TRAVATAN [Concomitant]
     Active Substance: TRAVOPROST
     Indication: INTRAOCULAR PRESSURE INCREASED
     Dosage: 1 DROP IN THE RIGHT EYE, UNSPECIFIED FREQUENCY
     Dates: start: 2007
  7. DIAMOX SEQUELS [Concomitant]
     Active Substance: ACETAZOLAMIDE
     Dosage: 250 MG, 2X/DAY (EVERY 12 HOURS)

REACTIONS (3)
  - Blindness [Unknown]
  - Cerebrovascular accident [Unknown]
  - Retinal vascular thrombosis [Unknown]

NARRATIVE: CASE EVENT DATE: 2012
